FAERS Safety Report 16871535 (Version 3)
Quarter: 2022Q2

REPORT INFORMATION
  Report Type: Spontaneous
  Country: US (occurrence: US)
  Receive Date: 20191001
  Receipt Date: 20220517
  Transmission Date: 20220721
  Serious: Yes (Other)
  Sender: FDA-Public Use
  Company Number: US-TEVA-2019-US-1115556

PATIENT
  Age: 33 Year
  Sex: Male

DRUGS (4)
  1. TESTOSTERONE [Suspect]
     Active Substance: TESTOSTERONE
     Route: 065
  2. STANOZOLOL [Suspect]
     Active Substance: STANOZOLOL
     Route: 065
  3. OXYMETHOLONE [Suspect]
     Active Substance: OXYMETHOLONE
     Route: 065
  4. SOMATROPIN [Suspect]
     Active Substance: SOMATROPIN
     Route: 065

REACTIONS (2)
  - Aortic aneurysm [Unknown]
  - Drug abuse [Unknown]
